FAERS Safety Report 6982429-0 (Version None)
Quarter: 2010Q3

REPORT INFORMATION
  Report Type: 
  Country: None (occurrence: None)
  Receive Date: 20100914
  Receipt Date: 20100104
  Transmission Date: 20110219
  Serious: No
  Sender: FDA-Public Use
  Company Number: US-PFIZER INC-2010001990

PATIENT
  Sex: Female
  Weight: 61.678 kg

DRUGS (4)
  1. LYRICA [Suspect]
     Indication: FIBROMYALGIA
     Dosage: 50 MG, 1X/DAY
     Route: 048
     Dates: start: 20091222
  2. LEVOTHROID [Concomitant]
  3. ESTRADIOL [Concomitant]
  4. CLONAZEPAM [Concomitant]

REACTIONS (3)
  - CONSTIPATION [None]
  - GASTRITIS [None]
  - IRRITABLE BOWEL SYNDROME [None]
